FAERS Safety Report 12162561 (Version 1)
Quarter: 2016Q1

REPORT INFORMATION
  Report Type: Spontaneous
  Country: US (occurrence: None)
  Receive Date: 20160308
  Receipt Date: 20160308
  Transmission Date: 20160526
  Serious: Yes (Disabling)
  Sender: FDA-Public Use
  Company Number: None

PATIENT
  Age: 22 Year
  Sex: Female
  Weight: 82.1 kg

DRUGS (2)
  1. DIAL SOAP (TRICLOSAN) [Suspect]
     Active Substance: TRICLOSAN
  2. DIAL ANTIBACTERIAL [Suspect]
     Active Substance: TRICLOCARBAN

REACTIONS (1)
  - Product formulation issue [None]
